FAERS Safety Report 16444905 (Version 1)
Quarter: 2019Q2

REPORT INFORMATION
  Report Type: Spontaneous
  Country: US (occurrence: US)
  Receive Date: 20190618
  Receipt Date: 20190618
  Transmission Date: 20190711
  Serious: Yes (Hospitalization, Disabling, Other)
  Sender: FDA-Public Use
  Company Number: US-PFIZER INC-2019259240

PATIENT
  Age: 67 Year
  Sex: Female
  Weight: 58.96 kg

DRUGS (6)
  1. VENLAFAXINE HCL [Suspect]
     Active Substance: VENLAFAXINE HYDROCHLORIDE
     Indication: POLYCYSTIC OVARIES
     Dosage: 75 MG, UNK
  2. VENLAFAXINE HCL [Suspect]
     Active Substance: VENLAFAXINE HYDROCHLORIDE
     Indication: DEPRESSION
  3. SOLATOL [Concomitant]
     Active Substance: SOTALOL
     Indication: ATRIAL FIBRILLATION
     Dosage: 120 MG, 2X/DAY
     Route: 048
  4. LAMOTRIGINE. [Concomitant]
     Active Substance: LAMOTRIGINE
     Indication: SEIZURE
     Dosage: 100 MG, 2X/DAY
     Route: 048
     Dates: start: 201905
  5. LISINOPRIL. [Concomitant]
     Active Substance: LISINOPRIL
     Indication: BLOOD PRESSURE ABNORMAL
     Dosage: 1 DF, UNK
     Route: 048
  6. LEVOTHYROXINE. [Concomitant]
     Active Substance: LEVOTHYROXINE
     Dosage: 125 UG, UNK

REACTIONS (7)
  - Disease recurrence [Not Recovered/Not Resolved]
  - Muscle disorder [Recovering/Resolving]
  - Anger [Unknown]
  - Seizure [Not Recovered/Not Resolved]
  - Memory impairment [Recovering/Resolving]
  - Ataxia [Recovering/Resolving]
  - Gait disturbance [Recovering/Resolving]
